FAERS Safety Report 5483562-5 (Version None)
Quarter: 2007Q4

REPORT INFORMATION
  Report Type: 
  Country: None (occurrence: None)
  Receive Date: 20071009
  Receipt Date: 20070921
  Transmission Date: 20080405
  Serious: Yes (Hospitalization)
  Sender: FDA-Public Use
  Company Number: SPV1-2007-04388

PATIENT
  Age: 12 Year
  Sex: Male
  Weight: 22 kg

DRUGS (5)
  1. ELAPRASE (IDURSULFASE) CONCENTRATE FOR INFUSION [Suspect]
     Indication: MUCOPOLYSACCHARIDOSIS II
     Dosage: 12 MG, 1X/WEEK, IV DRIP
     Route: 041
     Dates: start: 20070101
  2. TOPAMAX [Suspect]
  3. KLONOPIN [Concomitant]
  4. ATROVENT [Concomitant]
  5. MIRALAX [Concomitant]

REACTIONS (7)
  - BLOOD ELECTROLYTES ABNORMAL [None]
  - CONDITION AGGRAVATED [None]
  - CONVULSION [None]
  - HYPERCALCAEMIA [None]
  - PYREXIA [None]
  - RENAL DISORDER [None]
  - URINE ELECTROLYTES ABNORMAL [None]
